FAERS Safety Report 7643530-1 (Version None)
Quarter: 2011Q3

REPORT INFORMATION
  Report Type: 
  Country: None (occurrence: None)
  Receive Date: 20110729
  Receipt Date: 20110719
  Transmission Date: 20111222
  Serious: Yes (Other)
  Sender: FDA-Public Use
  Company Number: PT-JNJFOC-20110707847

PATIENT
  Age: 69 Year
  Sex: Male

DRUGS (2)
  1. METHOTREXATE [Concomitant]
  2. INFLIXIMAB, RECOMBINANT [Suspect]
     Indication: RHEUMATOID ARTHRITIS
     Route: 042

REACTIONS (1)
  - SECONDARY AMYLOIDOSIS [None]
